FAERS Safety Report 4336973-5 (Version None)
Quarter: 2004Q2

REPORT INFORMATION
  Report Type: 
  Country: None (occurrence: None)
  Receive Date: 20040408
  Receipt Date: 20040325
  Transmission Date: 20050107
  Serious: Yes (Other)
  Sender: FDA-Public Use
  Company Number: 2004020436

PATIENT
  Age: 26 Year
  Sex: Female
  Weight: 83.9154 kg

DRUGS (4)
  1. BENADRYL [Suspect]
     Indication: EUPHORIC MOOD
     Dosage: 50-75, 25 MG TABS QD, ORAL
     Route: 048
     Dates: start: 20031101, end: 20040323
  2. CANNABIS (CANNABIS) [Suspect]
     Dosage: 4-5 JOINTS QD, INHALATION
     Route: 055
     Dates: start: 20030101
  3. OLANZAPINE [Concomitant]
  4. PAROXETINE HCL [Concomitant]

REACTIONS (6)
  - ANXIETY [None]
  - HEADACHE [None]
  - INTENTIONAL MISUSE [None]
  - OVERDOSE [None]
  - RESTLESSNESS [None]
  - TREMOR [None]
